FAERS Safety Report 21159522 (Version 7)
Quarter: 2023Q1

REPORT INFORMATION
  Report Type: Report from Study
  Country: US (occurrence: US)
  Receive Date: 20220802
  Receipt Date: 20230102
  Transmission Date: 20230417
  Serious: Yes (Other)
  Sender: FDA-Public Use
  Company Number: US-NOVARTISTESTPH-NVSC2022US173340

PATIENT
  Age: 58 Year
  Sex: Male

DRUGS (8)
  1. ENTRESTO [Suspect]
     Active Substance: SACUBITRIL\VALSARTAN
     Indication: Cardiac failure
     Dosage: 1 DOSAGE FORM, BID (24/26 MG)
     Route: 048
     Dates: start: 20220727
  2. ENTRESTO [Suspect]
     Active Substance: SACUBITRIL\VALSARTAN
     Dosage: 0.5 DOSAGE FORM, BID (24/26 MG)
     Route: 048
  3. ENTRESTO [Suspect]
     Active Substance: SACUBITRIL\VALSARTAN
     Dosage: 3 DOSAGE FORM, QD (24/26 MG) ( 3 PILLS A DAY OF 24/ 26MG)
     Route: 048
  4. ENTRESTO [Suspect]
     Active Substance: SACUBITRIL\VALSARTAN
     Dosage: UNK, BID, 49/51 MG TWICE A DAY 3 WEEKS AGO AND THEN 97/103 MG TWICE A DAY 1 WEEK AGO
     Route: 048
  5. METOPROLOL SUCCINATE [Suspect]
     Active Substance: METOPROLOL SUCCINATE
     Indication: Cardiac failure
     Dosage: 25 MG, BID
     Route: 048
     Dates: start: 20220707
  6. METOPROLOL SUCCINATE [Suspect]
     Active Substance: METOPROLOL SUCCINATE
     Dosage: 25 MG, QD (ONCE A DAY IN THE EVENING)
     Route: 048
     Dates: start: 20220728
  7. FARXIGA [Concomitant]
     Active Substance: DAPAGLIFLOZIN PROPANEDIOL
     Indication: Cardiac disorder
     Dosage: UNK
     Route: 065
  8. DIGOXIN [Concomitant]
     Active Substance: DIGOXIN
     Indication: Cardiac failure
     Dosage: 0.25 MG, QD
     Route: 065
     Dates: start: 20221015

REACTIONS (15)
  - Intracardiac thrombus [Recovered/Resolved]
  - Ejection fraction decreased [Unknown]
  - Hypotension [Recovered/Resolved]
  - Weight fluctuation [Unknown]
  - Weight increased [Unknown]
  - Insomnia [Not Recovered/Not Resolved]
  - Chest pain [Recovered/Resolved]
  - Peripheral swelling [Recovered/Resolved]
  - Dyspnoea [Unknown]
  - Bundle branch block left [Not Recovered/Not Resolved]
  - Visual impairment [Unknown]
  - Hypoacusis [Unknown]
  - Dizziness postural [Recovering/Resolving]
  - Fatigue [Unknown]
  - Wrong technique in product usage process [Unknown]

NARRATIVE: CASE EVENT DATE: 20220701
